FAERS Safety Report 18111400 (Version 1)
Quarter: 2020Q3

REPORT INFORMATION
  Report Type: Spontaneous
  Country: US (occurrence: US)
  Receive Date: 20200805
  Receipt Date: 20200805
  Transmission Date: 20201103
  Serious: No
  Sender: FDA-Public Use
  Company Number: US-BION-008780

PATIENT

DRUGS (1)
  1. BIONPHARMA^S DOFETILIDE [Suspect]
     Active Substance: DOFETILIDE
     Indication: PRODUCT USED FOR UNKNOWN INDICATION
     Dosage: STRENGTH 500 MG

REACTIONS (2)
  - Poor quality product administered [Not Recovered/Not Resolved]
  - Product quality issue [Unknown]
